FAERS Safety Report 5084633-8 (Version None)
Quarter: 2006Q3

REPORT INFORMATION
  Report Type: 
  Country: None (occurrence: None)
  Receive Date: 20060821
  Receipt Date: 20060808
  Transmission Date: 20061208
  Serious: Yes (Hospitalization)
  Sender: FDA-Public Use
  Company Number: GB-ROCHE-458899

PATIENT
  Age: 47 Year
  Sex: Female
  Weight: 70 kg

DRUGS (3)
  1. CAPECITABINE [Suspect]
     Indication: BREAST CANCER
     Route: 048
     Dates: start: 20060301, end: 20060501
  2. PHENYTOIN [Suspect]
     Indication: DRUG USE FOR UNKNOWN INDICATION
     Route: 048
     Dates: start: 20051001
  3. DEXAMETHASONE [Concomitant]
     Route: 048
     Dates: start: 20060301

REACTIONS (4)
  - COORDINATION ABNORMAL [None]
  - DRUG LEVEL INCREASED [None]
  - DRUG TOXICITY [None]
  - GINGIVAL HYPERTROPHY [None]
